FAERS Safety Report 9995710 (Version 1)
Quarter: 2014Q1

REPORT INFORMATION
  Report Type: Spontaneous
  Country: US (occurrence: None)
  Receive Date: 20140225
  Receipt Date: 20140225
  Transmission Date: 20141002
  Serious: Yes (Hospitalization)
  Sender: FDA-Public Use
  Company Number: 2013-US-001748

PATIENT
  Age: 88 Year
  Sex: Female

DRUGS (2)
  1. PRIALT [Suspect]
     Indication: PAIN
     Route: 037
     Dates: end: 20131001
  2. PRIALT [Suspect]
     Indication: BACK PAIN
     Route: 037
     Dates: end: 20131001

REACTIONS (4)
  - Somnolence [None]
  - Pain [None]
  - Swelling [None]
  - Device issue [None]
